FAERS Safety Report 18870616 (Version 2)
Quarter: 2022Q3

REPORT INFORMATION
  Report Type: Spontaneous
  Country: US (occurrence: US)
  Receive Date: 20210210
  Receipt Date: 20220831
  Transmission Date: 20221027
  Serious: Yes (Other)
  Sender: FDA-Public Use
  Company Number: US-SA-2021SA032976

PATIENT
  Age: 75 Year
  Sex: Male

DRUGS (1)
  1. ZANTAC [Suspect]
     Active Substance: RANITIDINE HYDROCHLORIDE
     Indication: Gastrooesophageal reflux disease
     Dosage: 300 MG, QD
     Dates: start: 200501, end: 202001

REACTIONS (2)
  - Prostate cancer stage II [Recovered/Resolved]
  - Prostatic disorder [Unknown]

NARRATIVE: CASE EVENT DATE: 20140101
